FAERS Safety Report 20086734 (Version 1)
Quarter: 2021Q4

REPORT INFORMATION
  Report Type: Spontaneous
  Country: CN (occurrence: CN)
  Receive Date: 20211118
  Receipt Date: 20211118
  Transmission Date: 20220303
  Serious: Yes (Life-Threatening, Hospitalization, Other)
  Sender: FDA-Public Use
  Company Number: CN-NAPPMUNDI-GBR-2021-0092483

PATIENT
  Age: 78 Year
  Sex: Male

DRUGS (1)
  1. MS CONTIN [Suspect]
     Active Substance: MORPHINE SULFATE
     Indication: Analgesic therapy
     Dosage: 60 MG, Q12H
     Route: 048
     Dates: start: 20211027, end: 20211029

REACTIONS (2)
  - Respiratory failure [Recovering/Resolving]
  - Respiratory acidosis [Recovering/Resolving]

NARRATIVE: CASE EVENT DATE: 20211029
